FAERS Safety Report 16076613 (Version 1)
Quarter: 2019Q1

REPORT INFORMATION
  Report Type: Spontaneous
  Country: US (occurrence: US)
  Receive Date: 20190315
  Receipt Date: 20190315
  Transmission Date: 20190418
  Serious: Yes (Hospitalization, Other)
  Sender: FDA-Public Use
  Company Number: US-AMGEN INC.-USASP2019039340

PATIENT
  Age: 58 Year
  Sex: Female

DRUGS (8)
  1. AIMOVIG [Suspect]
     Active Substance: ERENUMAB-AOOE
     Indication: MIGRAINE
     Dosage: 70 MILLIGRAM, QMO
     Route: 065
     Dates: start: 201808, end: 20190204
  2. VALIUM [Concomitant]
     Active Substance: DIAZEPAM
     Dosage: 2 MILLIGRAM, TID (TAKES IN THE EVENING HOURS)
     Route: 065
  3. ZANAFLEX [Concomitant]
     Active Substance: TIZANIDINE HYDROCHLORIDE
     Dosage: 2 MILLIGRAM, TID
     Route: 065
  4. AMBIEN [Concomitant]
     Active Substance: ZOLPIDEM TARTRATE
     Indication: INSOMNIA
     Dosage: UNK
  5. ALBUTEROL SULFATE. [Concomitant]
     Active Substance: ALBUTEROL SULFATE
     Indication: RESPIRATION ABNORMAL
     Dosage: UNK
  6. AIMOVIG [Suspect]
     Active Substance: ERENUMAB-AOOE
     Dosage: 70 MILLIGRAM, QMO
     Route: 065
     Dates: start: 20190311
  7. BACLOFEN. [Concomitant]
     Active Substance: BACLOFEN
     Indication: HEADACHE
     Dosage: UNK
     Route: 065
  8. OMEPRAZOLE. [Concomitant]
     Active Substance: OMEPRAZOLE
     Dosage: UNK

REACTIONS (8)
  - Influenza [Unknown]
  - Bronchitis [Unknown]
  - Pleurisy [Unknown]
  - Drug effect incomplete [Unknown]
  - Pneumonia [Recovering/Resolving]
  - Pericardial effusion [Unknown]
  - Oedema peripheral [Recovered/Resolved]
  - Urinary tract disorder [Unknown]

NARRATIVE: CASE EVENT DATE: 201810
